FAERS Safety Report 23966807 (Version 5)
Quarter: 2024Q4

REPORT INFORMATION
  Report Type: Spontaneous
  Country: CA (occurrence: None)
  Receive Date: 20240612
  Receipt Date: 20241219
  Transmission Date: 20250115
  Serious: Yes (Hospitalization, Other)
  Sender: ORION
  Company Number: CA-PFIZER INC-202400189822

PATIENT
  Age: 65 Year
  Sex: Male
  Weight: 108.84 kg

DRUGS (4)
  1. METHOTREXATE [Suspect]
     Active Substance: METHOTREXATE
     Indication: Colitis ulcerative
     Dates: start: 2014
  2. REMICADE [Concomitant]
     Active Substance: INFLIXIMAB
     Dosage: CYCLIC
     Dates: start: 2012, end: 202406
  3. OZEMPIC [Concomitant]
     Active Substance: SEMAGLUTIDE
  4. INFLECTRA [Concomitant]
     Active Substance: INFLIXIMAB-DYYB
     Indication: Colitis ulcerative
     Dates: start: 20241111

REACTIONS (9)
  - Colon cancer [Not Recovered/Not Resolved]
  - Adrenal gland cancer [Unknown]
  - Bradycardia [Unknown]
  - Product use in unapproved indication [Unknown]
  - Anxiety [Unknown]
  - Arthritis [Not Recovered/Not Resolved]
  - Frustration tolerance decreased [Unknown]
  - COVID-19 [Recovered/Resolved]
  - Eye disorder [Recovering/Resolving]

NARRATIVE: CASE EVENT DATE: 20140101
